FAERS Safety Report 7245821 (Version 2)
Quarter: 2014Q3

REPORT INFORMATION
  Report Type: Spontaneous
  Country: US (occurrence: None)
  Receive Date: 20091230
  Receipt Date: 20140918
  Transmission Date: 20150326
  Serious: Yes (Hospitalization, Other)
  Sender: FDA-Public Use
  Company Number: 2009S1009119

PATIENT
  Age: 56 Year
  Sex: Male

DRUGS (6)
  1. MICROZIDE (HYDROCHLOROTHIAZIDE) [Concomitant]
  2. ZESTRIL (LISINOPRIL) [Concomitant]
  3. TOPROL (METOPROLOL SUCCINATE) [Concomitant]
  4. VERAPAMIL [Concomitant]
     Active Substance: VERAPAMIL HYDROCHLORIDE
  5. PRAVACHOL (PRAVASTATIN SODIUM) [Concomitant]
  6. PHOSPHO-SODA [Suspect]
     Active Substance: SODIUM PHOSPHATE, DIBASIC\SODIUM PHOSPHATE, MONOBASIC
     Indication: COLONOSCOPY
     Dosage: ; PO
     Route: 048
     Dates: start: 20030120

REACTIONS (18)
  - Viral infection [None]
  - Cardiomegaly [None]
  - Headache [None]
  - Anaemia [None]
  - Diarrhoea [None]
  - Pyrexia [None]
  - Renal failure chronic [None]
  - Hypovolaemia [None]
  - Renal tubular necrosis [None]
  - Renal disorder [None]
  - Hypernatraemia [None]
  - Hypotension [None]
  - Hyperkalaemia [None]
  - Metabolic acidosis [None]
  - Renal failure acute [None]
  - Blood pressure decreased [None]
  - Renal artery stenosis [None]
  - Tachycardia [None]

NARRATIVE: CASE EVENT DATE: 20030130
